FAERS Safety Report 18473417 (Version 1)
Quarter: 2020Q4

REPORT INFORMATION
  Report Type: Spontaneous
  Country: US (occurrence: US)
  Receive Date: 20201106
  Receipt Date: 20201106
  Transmission Date: 20210114
  Serious: Yes (Other)
  Sender: FDA-Public Use
  Company Number: None

PATIENT
  Age: 23 Year
  Sex: Female

DRUGS (1)
  1. VIMPAT [Suspect]
     Active Substance: LACOSAMIDE
     Indication: SEIZURE
     Route: 048
     Dates: start: 20191205

REACTIONS (10)
  - Maternal exposure during breast feeding [None]
  - Drug withdrawal syndrome neonatal [None]
  - Irritability [None]
  - Hyperhidrosis [None]
  - Feeling hot [None]
  - Anger [None]
  - Insomnia [None]
  - Increased appetite [None]
  - Pregnancy [None]
  - Exposure via breast milk [None]

NARRATIVE: CASE EVENT DATE: 20201105
